FAERS Safety Report 4355532-1 (Version None)
Quarter: 2004Q2

REPORT INFORMATION
  Report Type: 
  Country: None (occurrence: None)
  Receive Date: 20040505
  Receipt Date: 20040420
  Transmission Date: 20050107
  Serious: Yes (Hospitalization)
  Sender: FDA-Public Use
  Company Number: 233390

PATIENT
  Age: 29 Year
  Sex: Male

DRUGS (1)
  1. NORDITROPIN SIMPLEXX (SOMATROPIN) SOLUTION FOR INJECTION, 3.3 MG/ML [Suspect]
     Indication: GROWTH HORMONE DEFICIENCY
     Dosage: 0.45 MG, 3 TIMES A WEEK, SUBCUTANEOUS
     Route: 058
     Dates: start: 20010101, end: 20031001

REACTIONS (1)
  - POLYCYTHAEMIA [None]
